FAERS Safety Report 7557936-2 (Version None)
Quarter: 2011Q2

REPORT INFORMATION
  Report Type: 
  Country: None (occurrence: None)
  Receive Date: 20110620
  Receipt Date: 20110610
  Transmission Date: 20111010
  Serious: Yes (Hospitalization)
  Sender: FDA-Public Use
  Company Number: B0725442A

PATIENT
  Sex: Female

DRUGS (7)
  1. VENTOLIN [Suspect]
     Indication: ASTHMA
     Dosage: 2PUFF THREE TIMES PER DAY
     Route: 055
  2. SYMBICORT [Suspect]
     Indication: ASTHMA
     Dosage: 2PUFF TWICE PER DAY
     Route: 055
  3. MAGNE B6 [Suspect]
     Dosage: 1UNIT TWICE PER DAY
     Route: 048
  4. NEXIUM [Suspect]
     Dosage: 20MG PER DAY
     Route: 048
     Dates: start: 20110103
  5. ASPIRIN [Suspect]
     Dosage: 75MG PER DAY
     Route: 048
  6. VANCOMYCIN [Concomitant]
     Dates: end: 20110107
  7. TIENAM [Concomitant]
     Dates: end: 20110107

REACTIONS (2)
  - RASH MACULO-PAPULAR [None]
  - ANGIOEDEMA [None]
